FAERS Safety Report 7945692-5 (Version None)
Quarter: 2011Q4

REPORT INFORMATION
  Report Type: 
  Country: None (occurrence: None)
  Receive Date: 20111129
  Receipt Date: 20111122
  Transmission Date: 20120403
  Serious: Yes (Hospitalization, Other)
  Sender: FDA-Public Use
  Company Number: FR-PFIZER INC-2011202425

PATIENT
  Age: 17 Year
  Sex: Male

DRUGS (3)
  1. SULFASALAZINE [Suspect]
     Indication: CROHN'S DISEASE
  2. IMURAN [Concomitant]
     Dosage: 150 MG, 1X/DAY
     Dates: start: 20020101, end: 20030915
  3. SULFASALAZINE [Suspect]
     Indication: COLITIS ULCERATIVE
     Dosage: 3 G, 1X/DAY
     Dates: start: 20030825, end: 20030924

REACTIONS (3)
  - TOXIC SHOCK SYNDROME STAPHYLOCOCCAL [None]
  - TOXIC EPIDERMAL NECROLYSIS [None]
  - SEPTIC SHOCK [None]
